FAERS Safety Report 14884375 (Version 5)
Quarter: 2020Q2

REPORT INFORMATION
  Report Type: Spontaneous
  Country: US (occurrence: US)
  Receive Date: 20180511
  Receipt Date: 20200505
  Transmission Date: 20200713
  Serious: Yes (Hospitalization, Other)
  Sender: FDA-Public Use
  Company Number: US-ACTELION-A-NJ2018-171917

PATIENT
  Age: 53 Year
  Sex: Male

DRUGS (15)
  1. OPSUMIT [Suspect]
     Active Substance: MACITENTAN
     Indication: PULMONARY HYPERTENSION
     Dosage: 10 MG, QD
     Route: 048
     Dates: start: 20171125, end: 20180502
  2. SPIRONOLACTONE. [Concomitant]
     Active Substance: SPIRONOLACTONE
  3. PRADAXA [Concomitant]
     Active Substance: DABIGATRAN ETEXILATE MESYLATE
  4. VENLAFAXINE [Concomitant]
     Active Substance: VENLAFAXINE HYDROCHLORIDE
  5. BUMETANIDE. [Concomitant]
     Active Substance: BUMETANIDE
  6. METOPROLOL. [Concomitant]
     Active Substance: METOPROLOL
  7. LEVOTHYROXINE. [Concomitant]
     Active Substance: LEVOTHYROXINE
  8. BUPROPION. [Concomitant]
     Active Substance: BUPROPION
  9. KLOR-CON [Concomitant]
     Active Substance: POTASSIUM CHLORIDE
  10. OMEGA 3 FISH OIL [Concomitant]
     Active Substance: FISH OIL\OMEGA-3 FATTY ACIDS
  11. VITAMIN B-6 [Concomitant]
     Active Substance: PYRIDOXINE
  12. VITAMIN D3 [Concomitant]
     Active Substance: CHOLECALCIFEROL
  13. VITAMIN E [Concomitant]
     Active Substance: .ALPHA.-TOCOPHEROL
  14. OPSUMIT [Suspect]
     Active Substance: MACITENTAN
     Dosage: UNK
     Route: 048
     Dates: start: 202002, end: 202003
  15. DILTIAZEM. [Concomitant]
     Active Substance: DILTIAZEM

REACTIONS (5)
  - Surgery [Unknown]
  - Pulmonary hypertension [Recovering/Resolving]
  - Atrial septal defect repair [Recovered/Resolved]
  - Drug intolerance [Unknown]
  - Ventricular septal defect repair [Recovered/Resolved]

NARRATIVE: CASE EVENT DATE: 20200320
